FAERS Safety Report 5102859-1 (Version None)
Quarter: 2006Q3

REPORT INFORMATION
  Report Type: 
  Country: None (occurrence: None)
  Receive Date: 20060907
  Receipt Date: 20060822
  Transmission Date: 20061208
  Serious: Yes (Hospitalization)
  Sender: FDA-Public Use
  Company Number: 310012K06FRA

PATIENT
  Age: 30 Year
  Sex: Female

DRUGS (1)
  1. GONAL-F [Suspect]
     Indication: OVULATION INDUCTION
     Dosage: 75 IU
     Dates: start: 20060112

REACTIONS (3)
  - ABORTION SPONTANEOUS [None]
  - ANGIONEUROTIC OEDEMA [None]
  - PREGNANCY [None]
